FAERS Safety Report 5828587-2 (Version None)
Quarter: 2008Q3

REPORT INFORMATION
  Report Type: 
  Country: None (occurrence: None)
  Receive Date: 20080731
  Receipt Date: 20080728
  Transmission Date: 20090109
  Serious: Yes (Other)
  Sender: FDA-Public Use
  Company Number: US-BRISTOL-MYERS SQUIBB COMPANY-14279483

PATIENT
  Age: 76 Year
  Sex: Male

DRUGS (5)
  1. VINCRISTINE SULFATE [Suspect]
     Indication: B-CELL LYMPHOMA
  2. DOXORUBICIN HCL [Suspect]
     Indication: B-CELL LYMPHOMA
  3. CYCLOPHOSPHAMIDE [Suspect]
     Indication: B-CELL LYMPHOMA
  4. PREDNISONE [Suspect]
     Indication: B-CELL LYMPHOMA
  5. RITUXIMAB [Suspect]
     Indication: B-CELL LYMPHOMA

REACTIONS (6)
  - CARDIAC FAILURE CONGESTIVE [None]
  - CONSTIPATION [None]
  - DYSPHAGIA [None]
  - MYALGIA [None]
  - PARAESTHESIA [None]
  - PHRENIC NERVE PARALYSIS [None]
